FAERS Safety Report 8532240-4 (Version None)
Quarter: 2012Q3

REPORT INFORMATION
  Report Type: 
  Country: None (occurrence: None)
  Receive Date: 20120723
  Receipt Date: 20120719
  Transmission Date: 20120928
  Serious: Yes (Hospitalization, Disabling, Other)
  Sender: FDA-Public Use
  Company Number: US-009507513-1203USA04538

PATIENT

DRUGS (2)
  1. SINGULAIR [Suspect]
     Indication: HYPERSENSITIVITY
  2. SINGULAIR [Suspect]
     Indication: COUGH
     Dosage: 4 MG, QD
     Route: 048
     Dates: start: 20120301, end: 20120320

REACTIONS (13)
  - RASH [None]
  - CONVULSION [None]
  - TOURETTE'S DISORDER [None]
  - COUGH [None]
  - ONYCHOPHAGIA [None]
  - ANXIETY [None]
  - TIC [None]
  - EXCESSIVE EYE BLINKING [None]
  - MUSCLE SPASMS [None]
  - BALANCE DISORDER [None]
  - PYREXIA [None]
  - DERMATITIS ATOPIC [None]
  - ARTHROPOD BITE [None]
